FAERS Safety Report 11922634 (Version 2)
Quarter: 2016Q1

REPORT INFORMATION
  Report Type: Report from Study
  Country: US (occurrence: US)
  Receive Date: 20160115
  Receipt Date: 20160209
  Transmission Date: 20160526
  Serious: Yes (Hospitalization)
  Sender: FDA-Public Use
  Company Number: US-EXELIXIS-CABO-16005936

PATIENT
  Age: 66 Year
  Sex: Male

DRUGS (1)
  1. COMETRIQ [Suspect]
     Active Substance: CABOZANTINIB S-MALATE
     Indication: PROSTATE CANCER
     Dosage: 100 MG, QD
     Route: 048
     Dates: start: 20160104, end: 20160112

REACTIONS (9)
  - Dehydration [Unknown]
  - Overdose [Unknown]
  - Atrial fibrillation [Unknown]
  - Upper respiratory tract infection [Unknown]
  - Cough [Unknown]
  - Confusional state [Unknown]
  - Urinary tract infection [Not Recovered/Not Resolved]
  - Sepsis [Unknown]
  - Off label use [Unknown]

NARRATIVE: CASE EVENT DATE: 20160109
